FAERS Safety Report 19779506 (Version 2)
Quarter: 2022Q2

REPORT INFORMATION
  Report Type: Spontaneous
  Country: US (occurrence: US)
  Receive Date: 20210902
  Receipt Date: 20220511
  Transmission Date: 20220721
  Serious: No
  Sender: FDA-Public Use
  Company Number: US-PFIZER INC-202100993284

PATIENT
  Sex: Male

DRUGS (1)
  1. LATANOPROST [Suspect]
     Active Substance: LATANOPROST
     Dosage: UNK

REACTIONS (2)
  - Product packaging quantity issue [Unknown]
  - Poor quality product administered [Unknown]
